FAERS Safety Report 13800920 (Version 1)
Quarter: 2017Q3

REPORT INFORMATION
  Report Type: Spontaneous
  Country: ES (occurrence: ES)
  Receive Date: 20170727
  Receipt Date: 20170727
  Transmission Date: 20171127
  Serious: Yes (Hospitalization)
  Sender: FDA-Public Use
  Company Number: ES-PFIZER INC-2194124

PATIENT
  Age: 60 Year
  Sex: Female

DRUGS (23)
  1. LACTULOSE. [Concomitant]
     Active Substance: LACTULOSE
     Indication: CONSTIPATION PROPHYLAXIS
     Dosage: UNK
  2. CISPLATIN. [Suspect]
     Active Substance: CISPLATIN
     Indication: BREAST CANCER
     Dosage: 100 MG,DAY 1OF EACH 21 DAY CYCLE
     Route: 041
     Dates: start: 20140312, end: 20140312
  3. ERIBULIN [Suspect]
     Active Substance: ERIBULIN
     Dosage: 0.7 MG/M2, 1.4MG; DAYS 1AND 8 OF EACH 21 DAY CYCLE
     Route: 041
     Dates: start: 20140220, end: 20140220
  4. ERIBULIN [Suspect]
     Active Substance: ERIBULIN
     Dosage: 0.9 MG, DAYS 1 AND 8 OF EACH 21 DAY CYCLE
     Route: 041
     Dates: start: 20140312, end: 20140312
  5. VENLAFAXINE [Concomitant]
     Active Substance: VENLAFAXINE HYDROCHLORIDE
     Indication: DEPRESSION
     Dosage: 150 MG, UNKNOW  FREQ: 1 DAY; INTERVAL: 1
     Route: 048
     Dates: start: 20030101
  6. OMEPRAZOLE. [Concomitant]
     Active Substance: OMEPRAZOLE
     Indication: PROPHYLAXIS AGAINST GASTROINTESTINAL ULCER
     Dosage: 20 MG, 40 MG FREQ: 2 DAY; INTERVAL: 1
     Route: 048
     Dates: start: 20140104
  7. TRAMADOL. [Concomitant]
     Active Substance: TRAMADOL
     Indication: TUMOUR PAIN
     Dosage: 50 MG, UNKNOWN FREQ: 1HOUR; INTERVAL: 8
     Route: 048
     Dates: start: 20140107
  8. ERIBULIN [Suspect]
     Active Substance: ERIBULIN
     Indication: BREAST CANCER
     Dosage: 1 MG/M2, 2.0MG;DAYS 1 AND 8 OF EACH 21 DAY CYCLE
     Route: 041
     Dates: start: 20140122, end: 20140129
  9. METOCLOPRAMIDE HYDROCHLORIDE. [Concomitant]
     Active Substance: METOCLOPRAMIDE HYDROCHLORIDE
     Indication: PROPHYLAXIS OF NAUSEA AND VOMITING
     Dosage: UNKNOWN
     Route: 042
     Dates: start: 20140203, end: 20140211
  10. GEMCITABINE HYDROCHLORIDE. [Suspect]
     Active Substance: GEMCITABINE HYDROCHLORIDE
     Dosage: 500 MG/M2, 990 MG;DAYS 1AND 8OF EACH 21 DAY CYCLE
     Route: 041
     Dates: start: 20140220, end: 20140220
  11. CISPLATIN. [Suspect]
     Active Substance: CISPLATIN
     Dosage: 70 MG/M2,140MG;DAY 1 OF EACH 21 DAY CYCLE
     Route: 041
     Dates: start: 20140122, end: 20140220
  12. VALSARTAN. [Concomitant]
     Active Substance: VALSARTAN
     Dosage: 160 MG, UNKNOW  FREQ: 1 DAY; INTERVAL: 1
     Dates: start: 20140225
  13. GABAPENTIN. [Concomitant]
     Active Substance: GABAPENTIN
     Indication: NEURALGIA
     Dosage: UNKNOWN
     Route: 048
     Dates: start: 20140110
  14. GEMCITABINE HYDROCHLORIDE. [Suspect]
     Active Substance: GEMCITABINE HYDROCHLORIDE
     Dosage: 950 MG, DAYS 1 AND 8 OF EACH 21 DAY CYCLE
     Route: 041
     Dates: start: 20140312, end: 20140312
  15. NYSTATIN. [Concomitant]
     Active Substance: NYSTATIN
     Indication: MUCOSAL INFLAMMATION
     Dosage: UNKNOWN
     Route: 048
     Dates: start: 20140129
  16. APREPITANT. [Concomitant]
     Active Substance: APREPITANT
     Indication: PRODUCT USED FOR UNKNOWN INDICATION
     Dosage: UNK
  17. LACTULOSE. [Concomitant]
     Active Substance: LACTULOSE
     Indication: CONSTIPATION
     Dosage: UNKNOWN
     Route: 048
     Dates: start: 20140203, end: 20140211
  18. VALSARTAN. [Concomitant]
     Active Substance: VALSARTAN
     Indication: HYPERTENSION
     Dosage: 80 MG, UNKNOW  FREQ: 1 DAY; INTERVAL: 1
     Dates: start: 20130101, end: 20140201
  19. GEMCITABINE HYDROCHLORIDE. [Suspect]
     Active Substance: GEMCITABINE HYDROCHLORIDE
     Indication: BREAST CANCER
     Dosage: 100 MG/M2, 1980 MG;DAYS 1AND 8OF EACH 21 DAY CYCLE
     Route: 041
     Dates: start: 20140122, end: 20140129
  20. ACETAMINOPHEN. [Concomitant]
     Active Substance: ACETAMINOPHEN
     Indication: TUMOUR PAIN
     Dosage: UNKNOWN
     Route: 048
     Dates: start: 20140107
  21. ALPRAZOLAM. [Concomitant]
     Active Substance: ALPRAZOLAM
     Indication: ANXIETY
     Dosage: 0.5 MG, UNK
     Route: 048
     Dates: start: 20030101
  22. LORAZEPAM. [Concomitant]
     Active Substance: LORAZEPAM
     Indication: ANXIETY
     Dosage: UNKNOWN
     Route: 060
     Dates: start: 20140225, end: 20140305
  23. LORAZEPAM. [Concomitant]
     Active Substance: LORAZEPAM
     Indication: PRODUCT USED FOR UNKNOWN INDICATION
     Dosage: UNKNOWN
     Route: 042
     Dates: start: 20140407, end: 20140410

REACTIONS (4)
  - Neutropenia [Recovered/Resolved]
  - Vomiting [Recovered/Resolved]
  - Deep vein thrombosis [Recovered/Resolved]
  - Thrombocytopenia [Recovered/Resolved]

NARRATIVE: CASE EVENT DATE: 20140202
